FAERS Safety Report 12825113 (Version 1)
Quarter: 2016Q4

REPORT INFORMATION
  Report Type: Report from Study
  Country: US (occurrence: US)
  Receive Date: 20161006
  Receipt Date: 20161006
  Transmission Date: 20170207
  Serious: No
  Sender: FDA-Public Use
  Company Number: US-AMGEN-USASL2015107348

PATIENT
  Age: 56 Year
  Sex: Female

DRUGS (1)
  1. PROLIA [Suspect]
     Active Substance: DENOSUMAB
     Indication: PRODUCT USED FOR UNKNOWN INDICATION
     Dosage: UNK
     Route: 065

REACTIONS (9)
  - Nasopharyngitis [Unknown]
  - Back pain [Unknown]
  - Blood pressure increased [Unknown]
  - Malaise [Unknown]
  - Hiatus hernia [Unknown]
  - Cystitis [Unknown]
  - Influenza [Unknown]
  - Bone pain [Unknown]
  - Palpitations [Unknown]
